FAERS Safety Report 16360838 (Version 2)
Quarter: 2019Q2

REPORT INFORMATION
  Report Type: Spontaneous
  Country: JP (occurrence: JP)
  Receive Date: 20190528
  Receipt Date: 20190604
  Transmission Date: 20190711
  Serious: Yes (Hospitalization)
  Sender: FDA-Public Use
  Company Number: JP-ASTRAZENECA-2019SE77836

PATIENT
  Age: 80 Year
  Sex: Female

DRUGS (12)
  1. ERIBULIN MESYLATE [Concomitant]
     Active Substance: ERIBULIN MESYLATE
     Dosage: DOSE UNKNOWN
     Route: 065
  2. LETROZOLE. [Concomitant]
     Active Substance: LETROZOLE
     Dosage: DOSE UNKNOWN
     Route: 048
  3. PREGABALIN. [Concomitant]
     Active Substance: PREGABALIN
     Dosage: DOSE UNKNOWN
     Route: 065
  4. ABEMACICLIB [Concomitant]
     Active Substance: ABEMACICLIB
  5. GOSHAJINKIGAN [Concomitant]
     Active Substance: HERBALS
     Dosage: DOSE UNKNOWN
     Route: 048
  6. BEVACIZUMAB. [Concomitant]
     Active Substance: BEVACIZUMAB
     Dosage: DOSE UNKNOWN
     Route: 065
  7. HANGESHASHINTO [Concomitant]
     Active Substance: HERBALS
     Dosage: DOSE UNKNOWN
     Route: 048
  8. FASLODEX [Suspect]
     Active Substance: FULVESTRANT
     Indication: BREAST CANCER FEMALE
     Route: 030
  9. POLAPREZINC [Concomitant]
     Active Substance: POLAPREZINC
     Dosage: DOSE UNKNOWN
     Route: 065
  10. PALBOCICLIB [Concomitant]
     Active Substance: PALBOCICLIB
     Dosage: DOSE UNKNOWN
     Route: 048
  11. FUROSEMIDE. [Concomitant]
     Active Substance: FUROSEMIDE
     Dosage: DOSE UNKNOWN
     Route: 048
  12. FAMOTIDINE. [Concomitant]
     Active Substance: FAMOTIDINE
     Dosage: DOSE UNKNOWN
     Route: 065

REACTIONS (3)
  - Hypercalcaemia [Recovered/Resolved]
  - Interstitial lung disease [Recovering/Resolving]
  - Blood creatinine increased [Recovered/Resolved]
